FAERS Safety Report 21381792 (Version 5)
Quarter: 2023Q1

REPORT INFORMATION
  Report Type: Report from Study
  Country: CA (occurrence: CA)
  Receive Date: 20220927
  Receipt Date: 20230315
  Transmission Date: 20230418
  Serious: Yes (Death, Hospitalization, Other)
  Sender: FDA-Public Use
  Company Number: CA-HLS-202201693

PATIENT
  Age: 88 Year
  Sex: Male

DRUGS (2)
  1. CLOZARIL [Suspect]
     Active Substance: CLOZAPINE
     Indication: Product used for unknown indication
     Dosage: RESTARTED ON 22-NOV-2022
     Route: 048
  2. CLOZARIL [Suspect]
     Active Substance: CLOZAPINE
     Indication: Product used for unknown indication
     Dosage: 25MG, READJUSTED AT 37.5MG
     Route: 048
     Dates: start: 20220601, end: 20220906

REACTIONS (9)
  - Neutropenia [Recovered/Resolved]
  - Dementia with Lewy bodies [Not Recovered/Not Resolved]
  - General physical health deterioration [Unknown]
  - Myocardial infarction [Recovered/Resolved]
  - Idiosyncratic drug reaction [Unknown]
  - Death [Fatal]
  - Psychotic disorder [Unknown]
  - Psychotic disorder [Recovered/Resolved]
  - Leukopenia [Recovered/Resolved]

NARRATIVE: CASE EVENT DATE: 20220819
